FAERS Safety Report 20014261 (Version 7)
Quarter: 2023Q4

REPORT INFORMATION
  Report Type: Spontaneous
  Country: US (occurrence: US)
  Receive Date: 20211029
  Receipt Date: 20231128
  Transmission Date: 20240110
  Serious: No
  Sender: FDA-Public Use
  Company Number: US-PFIZER INC-202101430837

PATIENT
  Age: 57 Year
  Sex: Male

DRUGS (4)
  1. MEKTOVI [Suspect]
     Active Substance: BINIMETINIB
     Dosage: 75 MG
  2. MEKTOVI [Suspect]
     Active Substance: BINIMETINIB
     Dosage: 15 MG
  3. MEKTOVI [Suspect]
     Active Substance: BINIMETINIB
     Dosage: 45 MG, 1X/DAY
     Route: 048
  4. BRAFTOVI [Suspect]
     Active Substance: ENCORAFENIB
     Dosage: 450 MG
     Route: 048

REACTIONS (4)
  - Cardiac disorder [Unknown]
  - Pruritus [Unknown]
  - Alopecia [Unknown]
  - Off label use [Unknown]
